FAERS Safety Report 9454882 (Version 5)
Quarter: 2014Q2

REPORT INFORMATION
  Report Type: Report from Study
  Country: HU (occurrence: HU)
  Receive Date: 20130813
  Receipt Date: 20140422
  Transmission Date: 20141212
  Serious: Yes (Life-Threatening)
  Sender: FDA-Public Use
  Company Number: HU-ROCHE-1260082

PATIENT
  Age: 64 Year
  Sex: Female
  Weight: 82 kg

DRUGS (7)
  1. CAPECITABINE [Suspect]
     Indication: BREAST CANCER METASTATIC
     Dosage: DATE OF LAST DOSE PRIOR TO SAE 16/MAY/2013, PERMANENTLY DISCONTINUED.
     Route: 048
     Dates: start: 20111026, end: 20130620
  2. TRASTUZUMAB [Suspect]
     Indication: BREAST CANCER METASTATIC
     Dosage: LOADING DOSE PER PROTOCOL
     Route: 042
     Dates: start: 20111026, end: 20111026
  3. TRASTUZUMAB [Suspect]
     Dosage: MAINTENANCE DOSE PER PROTOCOL. DATE OF LAST DOSE PRIOR TO SAE 02/MAY/2013.
     Route: 042
     Dates: start: 20111116, end: 20130620
  4. TELMISARTAN [Concomitant]
     Route: 065
     Dates: start: 2000
  5. MOXONIDINE [Concomitant]
     Route: 065
     Dates: start: 2000
  6. ASA [Concomitant]
     Route: 065
     Dates: start: 20111021
  7. MEDAZEPAM [Concomitant]
     Route: 065
     Dates: start: 2006

REACTIONS (1)
  - Acute myeloid leukaemia [Not Recovered/Not Resolved]
